FAERS Safety Report 6389930-1 (Version None)
Quarter: 2009Q4

REPORT INFORMATION
  Report Type: 
  Country: None (occurrence: None)
  Receive Date: 20091006
  Receipt Date: 20090430
  Transmission Date: 20100525
  Serious: No
  Sender: FDA-Public Use
  Company Number: US-BRISTOL-MYERS SQUIBB COMPANY-14608749

PATIENT

DRUGS (1)
  1. AVAPRO [Suspect]

REACTIONS (1)
  - ANGIOEDEMA [None]
